FAERS Safety Report 15196309 (Version 3)
Quarter: 2018Q4

REPORT INFORMATION
  Report Type: Spontaneous
  Country: US (occurrence: US)
  Receive Date: 20180725
  Receipt Date: 20181016
  Transmission Date: 20190204
  Serious: Yes (Hospitalization, Other)
  Sender: FDA-Public Use
  Company Number: US-PFIZER INC-2018295811

PATIENT
  Age: 46 Year
  Sex: Female

DRUGS (1)
  1. IBUPROFEN. [Suspect]
     Active Substance: IBUPROFEN
     Indication: ANALGESIC THERAPY
     Dosage: 400 MG, 4X/DAY, (EVERY 6 H)

REACTIONS (2)
  - Intentional product misuse [Unknown]
  - Acute generalised exanthematous pustulosis [Recovering/Resolving]
